FAERS Safety Report 5861068-9 (Version None)
Quarter: 2008Q3

REPORT INFORMATION
  Report Type: 
  Country: None (occurrence: None)
  Receive Date: 20080826
  Receipt Date: 20080812
  Transmission Date: 20090109
  Serious: Yes (Disabling)
  Sender: FDA-Public Use
  Company Number: 2008002009

PATIENT
  Age: 64 Year

DRUGS (2)
  1. ERLOTINIB (ERLOTINIB) (TABLET) (ERLOTINIB) [Suspect]
     Indication: BILIARY NEOPLASM
     Dosage: (150 MG, QD), ORAL
     Route: 048
     Dates: start: 20080326
  2. BEVACIZUMAB (INJECTION FOR INFUSION) [Suspect]
     Indication: BILIARY NEOPLASM
     Dosage: (5 MG/KG, Q2W), INTRAVENOUS
     Route: 042
     Dates: start: 20080326

REACTIONS (1)
  - NAIL DISORDER [None]
